FAERS Safety Report 6830675-9 (Version None)
Quarter: 2010Q3

REPORT INFORMATION
  Report Type: 
  Country: None (occurrence: None)
  Receive Date: 20100706
  Receipt Date: 20100618
  Transmission Date: 20110219
  Serious: Yes (Hospitalization)
  Sender: FDA-Public Use
  Company Number: 2010002434

PATIENT
  Age: 58 Year
  Sex: Female
  Weight: 92.5 kg

DRUGS (2)
  1. ERLOTINIB (ERLOTINIB) (TABLET) (ERLOTINIB) [Suspect]
     Indication: RENAL CELL CARCINOMA
     Dosage: (150 MG,QD),ORAL
     Route: 048
     Dates: start: 20081208, end: 20090830
  2. SUNITINIB MALATE [Suspect]
     Indication: RENAL CELL CARCINOMA
     Dosage: (50 MG,QD), ORAL
     Route: 048
     Dates: start: 20081208, end: 20090830

REACTIONS (2)
  - CARDIAC FAILURE CONGESTIVE [None]
  - UPPER RESPIRATORY TRACT INFECTION [None]
